FAERS Safety Report 18198051 (Version 2)
Quarter: 2020Q4

REPORT INFORMATION
  Report Type: Spontaneous
  Country: US (occurrence: US)
  Receive Date: 20200826
  Receipt Date: 20201005
  Transmission Date: 20210113
  Serious: Yes (Other)
  Sender: FDA-Public Use
  Company Number: US-PFIZER INC-2020326065

PATIENT
  Age: 80 Year
  Sex: Male
  Weight: 104.33 kg

DRUGS (2)
  1. LATANOPROST. [Suspect]
     Active Substance: LATANOPROST
     Dosage: 2 DROP, 1X/DAY (ONE EYE DROP IN EACH EYE, NIGHTLY)
     Route: 047
  2. LATANOPROST. [Suspect]
     Active Substance: LATANOPROST
     Dosage: 2 DROP, 1X/DAY (2 DROPS PER NIGHT)
     Route: 047
     Dates: start: 2018

REACTIONS (6)
  - Incontinence [Unknown]
  - Dementia [Unknown]
  - Accidental overdose [Unknown]
  - Cystitis [Unknown]
  - Product complaint [Unknown]
  - Product use complaint [Unknown]
